FAERS Safety Report 10023687 (Version 1)
Quarter: 2014Q1

REPORT INFORMATION
  Report Type: Spontaneous
  Country: US (occurrence: None)
  Receive Date: 20140319
  Receipt Date: 20140319
  Transmission Date: 20141002
  Serious: Yes (Other)
  Sender: FDA-Public Use
  Company Number: None

PATIENT
  Age: 58 Year
  Sex: Female
  Weight: 86.18 kg

DRUGS (8)
  1. MIDODRINE [Suspect]
     Indication: HYPOTENSION
     Dosage: BEFORE DIALYSIS
     Dates: start: 20140301, end: 20140308
  2. MIDODRINE [Suspect]
     Indication: HYPOTENSION
     Dosage: BEFORE DIALYSIS
     Dates: start: 20140301, end: 20140308
  3. CLONIDINE [Concomitant]
  4. LISINOPRIL [Concomitant]
  5. RANZELA [Concomitant]
  6. TRENTAL [Concomitant]
  7. LIPITOR [Concomitant]
  8. EXTRA STRENGTH TYLENOL [Concomitant]

REACTIONS (2)
  - Dizziness [None]
  - Vomiting [None]
